FAERS Safety Report 13083656 (Version 1)
Quarter: 2017Q1

REPORT INFORMATION
  Report Type: Other
  Country: US (occurrence: US)
  Receive Date: 20170104
  Receipt Date: 20170104
  Transmission Date: 20170428
  Serious: Yes (Hospitalization)
  Sender: FDA-Public Use
  Company Number: US-LUPIN PHARMACEUTICALS INC.-2016-04695

PATIENT
  Age: 74 Year
  Sex: Female

DRUGS (22)
  1. LEVOCETIRIZINE [Concomitant]
     Active Substance: LEVOCETIRIZINE
     Indication: PRODUCT USED FOR UNKNOWN INDICATION
     Route: 065
  2. POTASSIUM CHLORIDE. [Concomitant]
     Active Substance: POTASSIUM CHLORIDE
     Indication: PRODUCT USED FOR UNKNOWN INDICATION
     Route: 065
  3. DICLOFENAC [Concomitant]
     Active Substance: DICLOFENAC
     Indication: PAIN
     Dosage: TWICE A DAY
     Route: 061
  4. ERGOCALCIFEROL. [Concomitant]
     Active Substance: ERGOCALCIFEROL
     Indication: PRODUCT USED FOR UNKNOWN INDICATION
     Route: 065
  5. LEVOTHYROXINE. [Concomitant]
     Active Substance: LEVOTHYROXINE
     Indication: PRODUCT USED FOR UNKNOWN INDICATION
     Route: 065
  6. FLUOXETINE [Interacting]
     Active Substance: FLUOXETINE HYDROCHLORIDE
     Indication: DEPRESSION
     Route: 065
  7. ALLOPURINOL. [Concomitant]
     Active Substance: ALLOPURINOL
     Indication: PRODUCT USED FOR UNKNOWN INDICATION
     Route: 065
  8. FUROSEMIDE. [Concomitant]
     Active Substance: FUROSEMIDE
     Indication: PRODUCT USED FOR UNKNOWN INDICATION
     Route: 065
  9. OMEPRAZOLE. [Concomitant]
     Active Substance: OMEPRAZOLE
     Indication: PRODUCT USED FOR UNKNOWN INDICATION
     Route: 065
  10. ROSUVASTATIN. [Concomitant]
     Active Substance: ROSUVASTATIN
     Indication: PRODUCT USED FOR UNKNOWN INDICATION
     Route: 065
  11. FLUOXETINE [Interacting]
     Active Substance: FLUOXETINE HYDROCHLORIDE
     Indication: ANXIETY
  12. STALEVO [Concomitant]
     Active Substance: CARBIDOPA\ENTACAPONE\LEVODOPA
     Indication: PRODUCT USED FOR UNKNOWN INDICATION
     Route: 065
  13. DULOXETINE. [Suspect]
     Active Substance: DULOXETINE
     Indication: ANXIETY
     Route: 065
  14. DULOXETINE. [Interacting]
     Active Substance: DULOXETINE
     Indication: DEPRESSION
  15. ASCORBIC ACID. [Concomitant]
     Active Substance: ASCORBIC ACID
     Indication: PRODUCT USED FOR UNKNOWN INDICATION
     Route: 065
  16. ASPIRIN. [Concomitant]
     Active Substance: ASPIRIN
     Indication: PRODUCT USED FOR UNKNOWN INDICATION
     Route: 065
  17. UBIQUINONE [Concomitant]
     Active Substance: UBIDECARENONE
     Indication: PRODUCT USED FOR UNKNOWN INDICATION
     Route: 065
  18. METHYLTHIONINIUM CHLORIDE [Interacting]
     Active Substance: METHYLENE BLUE
     Indication: PRODUCT USED FOR UNKNOWN INDICATION
     Dosage: 100MG OF 1%
     Route: 042
  19. ESTRADIOL. [Concomitant]
     Active Substance: ESTRADIOL
     Indication: PRODUCT USED FOR UNKNOWN INDICATION
     Route: 065
  20. LISINOPRIL. [Concomitant]
     Active Substance: LISINOPRIL
     Indication: PRODUCT USED FOR UNKNOWN INDICATION
     Route: 065
  21. OLOPATADINE [Concomitant]
     Active Substance: OLOPATADINE
     Indication: PRODUCT USED FOR UNKNOWN INDICATION
     Route: 045
  22. ROPINIROLE. [Concomitant]
     Active Substance: ROPINIROLE
     Indication: PRODUCT USED FOR UNKNOWN INDICATION
     Route: 065

REACTIONS (2)
  - Serotonin syndrome [Recovering/Resolving]
  - Drug interaction [Unknown]
